FAERS Safety Report 9786423 (Version 2)
Quarter: 2014Q1

REPORT INFORMATION
  Report Type: Spontaneous
  Country: GB (occurrence: GB)
  Receive Date: 20131227
  Receipt Date: 20140131
  Transmission Date: 20141002
  Serious: Yes (Other)
  Sender: FDA-Public Use
  Company Number: GB-PFIZER INC-2013366685

PATIENT
  Age: 46 Year
  Sex: Male

DRUGS (6)
  1. SULFASALAZINE [Suspect]
     Indication: COLITIS ULCERATIVE
     Dosage: 1 G, 4X/DAY
     Dates: start: 19711111, end: 197207
  2. SULFASALAZINE [Suspect]
     Dosage: 1 G, 1X/DAY
     Route: 048
     Dates: start: 19720918, end: 19720919
  3. SULFASALAZINE [Suspect]
     Dosage: UNK, SINGLE
     Dates: start: 19721024, end: 19721024
  4. FERROUS SULPHATE [Concomitant]
     Dosage: 200 MG, 3X/DAY
     Dates: start: 19711111
  5. PREDNISONE [Concomitant]
     Indication: COLITIS ULCERATIVE
     Dosage: UNK
     Dates: start: 197112
  6. PREDNISONE [Concomitant]
     Indication: COLITIS ULCERATIVE
     Dosage: 15 MG, TAPERED DAILY
     Route: 048
     Dates: start: 197202, end: 197203

REACTIONS (1)
  - Lung disorder [Recovered/Resolved]
